FAERS Safety Report 10208150 (Version 1)
Quarter: 2014Q2

REPORT INFORMATION
  Report Type: Spontaneous
  Country: US (occurrence: US)
  Receive Date: 20140530
  Receipt Date: 20140530
  Transmission Date: 20141212
  Serious: No
  Sender: FDA-Public Use
  Company Number: US-PURDUE-USA-2013-0105876

PATIENT
  Age: 25 Year
  Sex: Male

DRUGS (3)
  1. MORPHINE SULFATE EXTENDED-RELEASE TABLETS (RHODES 74-769, 74-862) [Suspect]
     Indication: PAIN
     Dosage: 15 MG, BID
     Route: 048
     Dates: start: 20130805
  2. PERCOCET                           /00446701/ [Suspect]
     Indication: PAIN
     Dosage: UNK, PRN
     Route: 048
     Dates: start: 201308
  3. SENOKOT-S 8.6 MG/50 MG [Concomitant]
     Indication: CONSTIPATION
     Dosage: 2 TABLET, DAILY
     Route: 048
     Dates: start: 20130816

REACTIONS (2)
  - Painful defaecation [Not Recovered/Not Resolved]
  - Constipation [Not Recovered/Not Resolved]
